FAERS Safety Report 8830247 (Version 1)
Quarter: 2012Q4

REPORT INFORMATION
  Report Type: Spontaneous
  Country: US (occurrence: None)
  Receive Date: 20121009
  Receipt Date: 20121009
  Transmission Date: 20130627
  Serious: No
  Sender: FDA-Public Use
  Company Number: None

PATIENT
  Age: 44 Year
  Sex: Female
  Weight: 113.4 kg

DRUGS (1)
  1. METHYLPREDNISOLONE ACETATE [Suspect]
     Indication: BACK PAIN
     Dosage: Injection one time
     Dates: start: 20120905, end: 20120905

REACTIONS (11)
  - Pyrexia [None]
  - Hyperhidrosis [None]
  - Feeling of body temperature change [None]
  - Fatigue [None]
  - Fatigue [None]
  - Wheezing [None]
  - Dyspnoea [None]
  - Neck pain [None]
  - Musculoskeletal pain [None]
  - Muscle spasms [None]
  - Balance disorder [None]
